FAERS Safety Report 5661725-3 (Version None)
Quarter: 2008Q1

REPORT INFORMATION
  Report Type: 
  Country: None (occurrence: None)
  Receive Date: 20080312
  Receipt Date: 20080310
  Transmission Date: 20080703
  Serious: Yes (Hospitalization)
  Sender: FDA-Public Use
  Company Number: B0511157A

PATIENT
  Age: 59 Year
  Sex: Male

DRUGS (4)
  1. REQUIP [Suspect]
     Indication: PARKINSON'S DISEASE
     Dosage: 6MG THREE TIMES PER DAY
     Route: 048
     Dates: start: 20070525
  2. CARBIDOPA AND LEVODOPA [Concomitant]
     Route: 048
  3. POLLAKISU [Concomitant]
  4. COMTAN [Concomitant]
     Route: 048

REACTIONS (3)
  - ALTERED STATE OF CONSCIOUSNESS [None]
  - SOMNOLENCE [None]
  - SUDDEN ONSET OF SLEEP [None]
